FAERS Safety Report 6740000-X (Version None)
Quarter: 2010Q2

REPORT INFORMATION
  Report Type: 
  Country: None (occurrence: None)
  Receive Date: 20100521
  Receipt Date: 20100319
  Transmission Date: 20101027
  Serious: Yes (Hospitalization)
  Sender: FDA-Public Use
  Company Number: 2010AL001808

PATIENT
  Age: 50 Year
  Sex: Male

DRUGS (3)
  1. HYDROCORTISONE 1%-P CREAM [Suspect]
     Indication: PROPHYLAXIS
     Dosage: IV
     Route: 042
     Dates: start: 20100225
  2. CHLORPHENIRAMINE MALEATE [Concomitant]
  3. INFLIXIMAB [Concomitant]

REACTIONS (2)
  - FATIGUE [None]
  - SOMNOLENCE [None]
